FAERS Safety Report 8318773-4 (Version None)
Quarter: 2012Q2

REPORT INFORMATION
  Report Type: 
  Country: None (occurrence: None)
  Receive Date: 20120427
  Receipt Date: 20120418
  Transmission Date: 20120825
  Serious: Yes (Other)
  Sender: FDA-Public Use
  Company Number: CA-JNJFOC-20120408525

PATIENT
  Sex: Male
  Weight: 98 kg

DRUGS (3)
  1. REMICADE [Suspect]
     Indication: CROHN'S DISEASE
     Route: 042
     Dates: start: 20060201
  2. BENADRYL [Concomitant]
     Indication: PREMEDICATION
     Route: 042
  3. HYDROCORTISONE [Concomitant]
     Indication: PREMEDICATION
     Route: 042

REACTIONS (2)
  - ARTHRALGIA [None]
  - DEPRESSED MOOD [None]
